FAERS Safety Report 20019326 (Version 1)
Quarter: 2021Q4

REPORT INFORMATION
  Report Type: Report from Study
  Country: SE (occurrence: SE)
  Receive Date: 20211101
  Receipt Date: 20211101
  Transmission Date: 20220303
  Serious: Yes (Other)
  Sender: FDA-Public Use
  Company Number: SE-JNJFOC-20211039948

PATIENT
  Age: 21 Year
  Sex: Male

DRUGS (4)
  1. BORTEZOMIB [Suspect]
     Active Substance: BORTEZOMIB
     Indication: Systemic lupus erythematosus
     Dosage: 1.3 MILLIGRAM/SQ. METER
     Route: 058
  2. RITUXIMAB [Suspect]
     Active Substance: RITUXIMAB
     Indication: Systemic lupus erythematosus
     Dosage: UNK
     Route: 065
  3. HYDROXYCHLOROQUINE [Suspect]
     Active Substance: HYDROXYCHLOROQUINE
     Indication: Systemic lupus erythematosus
     Dosage: UNK
     Route: 065
  4. MYCOPHENOLATE MOFETIL [Suspect]
     Active Substance: MYCOPHENOLATE MOFETIL
     Indication: Systemic lupus erythematosus
     Dosage: UNK
     Route: 065

REACTIONS (7)
  - Hyperkalaemia [Unknown]
  - Nephrogenic anaemia [Unknown]
  - Hepatic enzyme increased [Unknown]
  - Diarrhoea [Unknown]
  - Hypernatraemia [Unknown]
  - Off label use [Unknown]
  - Product use in unapproved indication [Unknown]
